FAERS Safety Report 24454870 (Version 2)
Quarter: 2024Q4

REPORT INFORMATION
  Report Type: Spontaneous
  Country: DE (occurrence: DE)
  Receive Date: 20241017
  Receipt Date: 20241018
  Transmission Date: 20250115
  Serious: No
  Sender: ROCHE
  Company Number: DE-ROCHE-3474633

PATIENT
  Age: 43 Year

DRUGS (11)
  1. RITUXIMAB [Suspect]
     Active Substance: RITUXIMAB
     Indication: Central nervous system lymphoma
     Dosage: DAY 0
     Route: 042
  2. DEXAMETHASONE [Concomitant]
     Active Substance: DEXAMETHASONE
     Dosage: DAY 1-3
  3. ETOPOSIDE [Concomitant]
     Active Substance: ETOPOSIDE
     Dosage: DAY 1-3,
  4. IFOSFAMIDE [Concomitant]
     Active Substance: IFOSFAMIDE
     Dosage: DAY 1-3
  5. CARBOPLATIN [Concomitant]
     Active Substance: CARBOPLATIN
     Dosage: DAY 1
  6. BUSULFAN [Concomitant]
     Active Substance: BUSULFAN
     Dosage: DAY -7 AND -6
  7. THIOTEPA [Concomitant]
     Active Substance: THIOTEPA
     Dosage: DAY -5 AND -4
  8. LENALIDOMIDE [Concomitant]
     Active Substance: LENALIDOMIDE
     Dosage: GIVEN FOR 2 YEARS
  9. CARMUSTINE [Concomitant]
     Active Substance: CARMUSTINE
  10. CYTARABINE [Concomitant]
     Active Substance: CYTARABINE
  11. METHOTREXATE [Concomitant]
     Active Substance: METHOTREXATE

REACTIONS (2)
  - Off label use [Unknown]
  - No adverse event [Unknown]
